FAERS Safety Report 9346973 (Version 4)
Quarter: 2013Q4

REPORT INFORMATION
  Report Type: Spontaneous
  Country: JP (occurrence: JP)
  Receive Date: 20130613
  Receipt Date: 20131121
  Transmission Date: 20140711
  Serious: Yes (Other)
  Sender: FDA-Public Use
  Company Number: JP-ASTRAZENECA-2013SE40803

PATIENT
  Age: 80 Year
  Sex: Female

DRUGS (1)
  1. DIPRIVAN [Suspect]
     Indication: SEDATION
     Dosage: 0.03-0.2 ML/KG/HR
     Route: 042
     Dates: start: 20130403, end: 20130423

REACTIONS (1)
  - Rhabdomyolysis [Recovered/Resolved]
